FAERS Safety Report 7869013-1 (Version None)
Quarter: 2011Q4

REPORT INFORMATION
  Report Type: 
  Country: None (occurrence: None)
  Receive Date: 20111028
  Receipt Date: 20101223
  Transmission Date: 20120403
  Serious: Yes (Other)
  Sender: FDA-Public Use
  Company Number: US-AMGEN-USASP2010011056

PATIENT
  Age: 63 Year
  Sex: Female
  Weight: 96.2 kg

DRUGS (7)
  1. ENBREL [Suspect]
     Indication: RHEUMATOID ARTHRITIS
     Dosage: 50 MG 1X/WK
     Route: 058
     Dates: start: 20070101, end: 20080919
  2. LEXAPRO [Concomitant]
     Dosage: UNK
     Route: 048
     Dates: start: 20080101
  3. LYRICA [Concomitant]
     Dosage: UNK
     Route: 048
     Dates: start: 20080101
  4. METHOTREXATE [Suspect]
     Dosage: 15 MG 1X/WK
     Route: 048
     Dates: start: 20060101, end: 20080919
  5. FOLIC ACID [Concomitant]
     Dosage: UNK
     Route: 048
     Dates: start: 20080101
  6. ATENOLOL [Concomitant]
     Dosage: UNK
     Route: 048
     Dates: start: 20080101
  7. CELEBREX [Concomitant]
     Dosage: UNK
     Route: 048
     Dates: start: 20080710, end: 20081118

REACTIONS (3)
  - DIFFUSE LARGE B-CELL LYMPHOMA [None]
  - BURSITIS [None]
  - RHEUMATOID ARTHRITIS [None]
